FAERS Safety Report 7552061-9 (Version None)
Quarter: 2011Q2

REPORT INFORMATION
  Report Type: 
  Country: None (occurrence: None)
  Receive Date: 20110609
  Receipt Date: 20110525
  Transmission Date: 20111010
  Serious: Yes (Death, Hospitalization)
  Sender: FDA-Public Use
  Company Number: AUR-APL-2011-01925

PATIENT
  Age: 90 Year
  Sex: Male

DRUGS (12)
  1. MAGNESIUM [Concomitant]
  2. ACETYLSALICYLIC ACID/MAGNESIUM OXIDE [Concomitant]
  3. LERCANIDIPINE [Concomitant]
  4. PANTOPRAZOLE SODIUM [Concomitant]
  5. FUROSEMIDE [Concomitant]
  6. FERROUS SULFATE TAB [Concomitant]
  7. LACTULOSE [Concomitant]
  8. CALCIGRAN FORTE [Concomitant]
  9. METFORMIN HCL [Suspect]
     Indication: DIABETES MELLITUS
     Dosage: 850MG-TID-ORAL
     Route: 048
     Dates: start: 20110301
  10. INSULIN [Concomitant]
  11. ENALAPRIL AND DIURETICS [Concomitant]
  12. ACETAMINOPHEN [Concomitant]

REACTIONS (6)
  - ANION GAP INCREASED [None]
  - LACTIC ACIDOSIS [None]
  - DEHYDRATION [None]
  - HYPOTENSION [None]
  - ANAEMIA [None]
  - RENAL FAILURE ACUTE [None]
